FAERS Safety Report 21471700 (Version 1)
Quarter: 2022Q4

REPORT INFORMATION
  Report Type: Spontaneous
  Country: US (occurrence: None)
  Receive Date: 20221018
  Receipt Date: 20221018
  Transmission Date: 20230113
  Serious: No
  Sender: FDA-Public Use
  Company Number: None

PATIENT
  Age: 75 Year
  Sex: Male
  Weight: 75.6 kg

DRUGS (5)
  1. DAYVIGO [Suspect]
     Active Substance: LEMBOREXANT
     Indication: Insomnia
     Dosage: OTHER QUANTITY : 1 TABLET(S);?FREQUENCY : AT BEDTIME;?
     Route: 048
     Dates: start: 20221017, end: 20221018
  2. BUPROPION [Concomitant]
     Active Substance: BUPROPION
  3. FLUTICASONE [Concomitant]
     Active Substance: FLUTICASONE
  4. SINGULAIR [Concomitant]
     Active Substance: MONTELUKAST SODIUM
  5. EXCEDRIN [Concomitant]
     Active Substance: ACETAMINOPHEN\ASPIRIN\CAFFEINE

REACTIONS (6)
  - Insomnia [None]
  - Anxiety [None]
  - Hallucination [None]
  - Sleep terror [None]
  - Suicidal ideation [None]
  - Therapy cessation [None]

NARRATIVE: CASE EVENT DATE: 20221017
